FAERS Safety Report 24765173 (Version 1)
Quarter: 2024Q4

REPORT INFORMATION
  Report Type: Report from Study
  Country: US (occurrence: US)
  Receive Date: 20241223
  Receipt Date: 20241223
  Transmission Date: 20250115
  Serious: No
  Sender: BLUEBIRD BIO
  Company Number: US-BLUEBIRD BIO-US-BBB-24-00055

PATIENT

DRUGS (2)
  1. LYFGENIA [Suspect]
     Active Substance: LOVOTIBEGLOGENE AUTOTEMCEL
     Indication: Sickle cell disease
     Dosage: TOTAL CD4 CELL DOSE 8.6 X 10^6 CD34/KG
     Route: 065
     Dates: start: 20240911
  2. BUSULFAN [Suspect]
     Active Substance: BUSULFAN
     Indication: Bone marrow conditioning regimen
     Dosage: UNK, UNK
     Route: 065
     Dates: start: 20240905, end: 20240908

REACTIONS (6)
  - Erythromelalgia [Recovering/Resolving]
  - Venoocclusive liver disease [Recovered/Resolved]
  - Plantar erythema [Recovering/Resolving]
  - Dizziness [Recovered/Resolved]
  - Mucosal inflammation [Recovering/Resolving]
  - Weight decreased [Recovering/Resolving]

NARRATIVE: CASE EVENT DATE: 20240928
